FAERS Safety Report 8860000 (Version 1)
Quarter: 2012Q4

REPORT INFORMATION
  Report Type: 
  Country: GB (occurrence: GB)
  Receive Date: 20121025
  Receipt Date: 20121025
  Transmission Date: 20130627
  Serious: Yes (Hospitalization, Other)
  Sender: FDA-Public Use
  Company Number: GB-PFIZER INC-2012258675

PATIENT
  Age: 52 Year
  Sex: Male

DRUGS (4)
  1. CLINDAMYCIN HCL [Suspect]
     Indication: CELLULITIS
     Dosage: 600 mg, 3x/day
     Route: 042
     Dates: start: 20120915, end: 20120923
  2. DICLOFENAC [Concomitant]
     Dosage: 150 mg, unknown
     Dates: start: 20120923
  3. PARACETAMOL [Concomitant]
     Dosage: 1 g, 4x/day
  4. NEXIUM [Concomitant]
     Dosage: 40 mg, UNK

REACTIONS (2)
  - Rash maculo-papular [Not Recovered/Not Resolved]
  - Rash erythematous [Not Recovered/Not Resolved]
